FAERS Safety Report 21222765 (Version 3)
Quarter: 2022Q4

REPORT INFORMATION
  Report Type: Report from Study
  Country: US (occurrence: US)
  Receive Date: 20220817
  Receipt Date: 20221004
  Transmission Date: 20230112
  Serious: No
  Sender: FDA-Public Use
  Company Number: US-BIOVITRUM-2022US09656

PATIENT
  Sex: Female

DRUGS (13)
  1. KINERET [Suspect]
     Active Substance: ANAKINRA
     Indication: Product used for unknown indication
     Dates: start: 20220729
  2. ATOVAQUONE [Concomitant]
     Active Substance: ATOVAQUONE
  3. OXYCODONE [Suspect]
     Active Substance: OXYCODONE
     Indication: Product used for unknown indication
  4. ERGOCALCIFEROL [Concomitant]
     Active Substance: ERGOCALCIFEROL
  5. KEPPRA [Concomitant]
     Active Substance: LEVETIRACETAM
  6. DILTIAZEM [Concomitant]
     Active Substance: DILTIAZEM
  7. FOLIC ACID [Concomitant]
     Active Substance: FOLIC ACID
  8. VALCYTE [Concomitant]
     Active Substance: VALGANCICLOVIR HYDROCHLORIDE
  9. CALCIUM CITRATE [Concomitant]
     Active Substance: CALCIUM CITRATE
  10. COLACE [Concomitant]
     Active Substance: DOCUSATE SODIUM
  11. OMEPRAZOLE [Concomitant]
     Active Substance: OMEPRAZOLE
  12. PREDNISONE [Concomitant]
     Active Substance: PREDNISONE
  13. CETIRIZINE [Concomitant]
     Active Substance: CETIRIZINE HYDROCHLORIDE

REACTIONS (9)
  - Dyspnoea [Unknown]
  - Contusion [Unknown]
  - Pyrexia [Unknown]
  - Rash pruritic [Unknown]
  - Injection site pain [Unknown]
  - Injection site erythema [Unknown]
  - Injection site pruritus [Unknown]
  - Injection site swelling [Unknown]
  - Injection site reaction [Unknown]
